FAERS Safety Report 7599229-3 (Version None)
Quarter: 2011Q3

REPORT INFORMATION
  Report Type: 
  Country: None (occurrence: None)
  Receive Date: 20110711
  Receipt Date: 20110624
  Transmission Date: 20111222
  Serious: Yes (Life-Threatening, Hospitalization, Other)
  Sender: FDA-Public Use
  Company Number: US-BAYER-201026631NA

PATIENT
  Age: 26 Year
  Sex: Female
  Weight: 80.272 kg

DRUGS (5)
  1. YAZ [Suspect]
     Indication: PRODUCT USED FOR UNKNOWN INDICATION
     Dosage: 1 DF, QD
     Route: 048
     Dates: start: 20070501, end: 20080801
  2. PROAIR HFA [Concomitant]
     Dosage: UNK
     Dates: start: 20000101
  3. ALBUTEROL SULFATE AUTOHALER [Concomitant]
     Dosage: UNK
     Dates: start: 20000101
  4. SYMBICORT [Concomitant]
     Dosage: UNK
     Dates: start: 20000101
  5. SINGULAIR [Concomitant]
     Dosage: UNK
     Dates: start: 20000101

REACTIONS (8)
  - CHOLECYSTITIS CHRONIC [None]
  - CHOLELITHIASIS [None]
  - GENERAL PHYSICAL HEALTH DETERIORATION [None]
  - ORGAN FAILURE [None]
  - PAIN [None]
  - GALLBLADDER DISORDER [None]
  - ANHEDONIA [None]
  - ANXIETY [None]
